FAERS Safety Report 7488588-8 (Version None)
Quarter: 2011Q2

REPORT INFORMATION
  Report Type: 
  Country: None (occurrence: None)
  Receive Date: 20110518
  Receipt Date: 20110509
  Transmission Date: 20111010
  Serious: No
  Sender: FDA-Public Use
  Company Number: 2007BI026048

PATIENT
  Sex: Female

DRUGS (14)
  1. SYNTHROID [Concomitant]
     Indication: HYPOTHYROIDISM
  2. HYDROCHLOROTHIAZIDE [Concomitant]
     Indication: PRODUCT USED FOR UNKNOWN INDICATION
  3. ASPIRIN [Concomitant]
     Indication: PRODUCT USED FOR UNKNOWN INDICATION
  4. FLOMAX [Concomitant]
     Indication: PRODUCT USED FOR UNKNOWN INDICATION
  5. TYSABRI [Suspect]
     Route: 042
     Dates: start: 20110428
  6. AVONEX [Concomitant]
     Indication: MULTIPLE SCLEROSIS
     Route: 030
  7. TRIAMTERENE [Concomitant]
     Indication: PRODUCT USED FOR UNKNOWN INDICATION
  8. TYSABRI [Suspect]
     Indication: MULTIPLE SCLEROSIS
     Route: 042
     Dates: start: 20071002, end: 20071031
  9. TYSABRI [Suspect]
     Route: 042
     Dates: start: 20080523, end: 20090410
  10. GABAPENTIN [Concomitant]
     Indication: PRODUCT USED FOR UNKNOWN INDICATION
  11. INSULIN [Concomitant]
     Indication: DIABETES MELLITUS
  12. RISPERDAL [Concomitant]
     Indication: PRODUCT USED FOR UNKNOWN INDICATION
  13. BACLOFEN [Concomitant]
     Indication: PRODUCT USED FOR UNKNOWN INDICATION
  14. CYMBALTA [Concomitant]
     Indication: DEPRESSION

REACTIONS (11)
  - CONTUSION [None]
  - DRUG INEFFECTIVE [None]
  - INFUSION RELATED REACTION [None]
  - MULTIPLE SCLEROSIS [None]
  - FALL [None]
  - PERONEAL NERVE PALSY [None]
  - MUSCLE ATROPHY [None]
  - DEVICE RELATED INFECTION [None]
  - DIABETES MELLITUS [None]
  - BLOOD GLUCOSE DECREASED [None]
  - HYPERSENSITIVITY [None]
